FAERS Safety Report 9327262 (Version 2)
Quarter: 2013Q2

REPORT INFORMATION
  Report Type: Spontaneous
  Country: JP (occurrence: JP)
  Receive Date: 20130604
  Receipt Date: 20130617
  Transmission Date: 20140414
  Serious: Yes (Hospitalization, Other)
  Sender: FDA-Public Use
  Company Number: JP-BAYER-2013-065373

PATIENT
  Age: 76 Year
  Sex: Male

DRUGS (3)
  1. BAYASPIRIN [Suspect]
     Indication: CEREBRAL INFARCTION
     Dosage: 100 MG, QD
     Route: 048
     Dates: start: 2004, end: 20120427
  2. BAYASPIRIN [Suspect]
     Indication: ATRIAL FIBRILLATION
  3. DIOVAN [Concomitant]
     Indication: HYPERTENSION
     Dosage: DAILY DOSE 80 MG
     Route: 048

REACTIONS (4)
  - Acquired haemophilia [None]
  - Haemothorax [None]
  - Gastric ulcer haemorrhage [None]
  - Subcutaneous haematoma [None]
